FAERS Safety Report 9312425 (Version 1)
Quarter: 2013Q2

REPORT INFORMATION
  Report Type: Spontaneous
  Country: US (occurrence: US)
  Receive Date: 20130528
  Receipt Date: 20130528
  Transmission Date: 20140414
  Serious: No
  Sender: FDA-Public Use
  Company Number: US-BRISTOL-MYERS SQUIBB COMPANY-17360868

PATIENT
  Age: 53 Year
  Sex: Male
  Weight: 106.57 kg

DRUGS (10)
  1. KOMBIGLYZE XR [Suspect]
     Indication: DIABETES MELLITUS INADEQUATE CONTROL
     Dosage: KOMBIGLYZE XR 24 HR 5-1,000 MG?TABS 1 PO DAILY IN PM?QTY:30TABS, MULTIPHASE.
     Route: 048
     Dates: start: 20130129
  2. VENTOLIN INHALER [Concomitant]
     Dosage: AEROSOL INHALER 90 MCG?2PUFF 4/1/D AS NEED, 2 REFILLS
     Dates: start: 20121029
  3. ASPIRIN [Concomitant]
     Dosage: TABS
     Route: 048
  4. ATENOLOL TABS 50 MG [Concomitant]
     Route: 048
     Dates: start: 20130311
  5. LANTUS [Concomitant]
     Dosage: 1DF:100 UNIT/ML,?24 UNITS SQ DAILY
     Route: 058
     Dates: start: 20130108
  6. METFORMIN HCL XR TABS 750 MG [Concomitant]
     Dosage: QTY:60, 5 REFILLS
     Route: 048
     Dates: start: 20120430
  7. METRONIDAZOLE [Concomitant]
     Dosage: TABS
     Route: 048
     Dates: start: 20130402
  8. FISH OIL [Concomitant]
     Dosage: CAPSULE?OMEGA3 FATTY ACIDS, VIT E
     Route: 048
     Dates: start: 20130108
  9. PROMETHAZINE [Concomitant]
     Dosage: AS NEEDED, TABS, QTY:20 TABS
     Route: 048
     Dates: start: 20130402
  10. CRESTOR [Concomitant]
     Dosage: TABS
     Route: 048
     Dates: start: 20121029

REACTIONS (3)
  - Flatulence [Unknown]
  - Diarrhoea [Unknown]
  - Eructation [Unknown]
